FAERS Safety Report 15255962 (Version 1)
Quarter: 2018Q3

REPORT INFORMATION
  Report Type: Spontaneous
  Country: US (occurrence: US)
  Receive Date: 20180718
  Receipt Date: 20180718
  Transmission Date: 20181010
  Serious: Yes (Hospitalization)
  Sender: FDA-Public Use
  Company Number: None

PATIENT
  Age: 62 Year
  Sex: Male

DRUGS (5)
  1. ONDANSETRON [Concomitant]
     Active Substance: ONDANSETRON
  2. DOXAZOSIN [Concomitant]
     Active Substance: DOXAZOSIN\DOXAZOSIN MESYLATE
  3. AMOXICILLIN. [Concomitant]
     Active Substance: AMOXICILLIN
  4. PROCHLORPER [Concomitant]
  5. CYCLOPHOSPHAMIDE 50 MG CAP [Suspect]
     Active Substance: CYCLOPHOSPHAMIDE
     Indication: NEOPLASM MALIGNANT
     Route: 048
     Dates: start: 20180614

REACTIONS (1)
  - Treatment failure [None]

NARRATIVE: CASE EVENT DATE: 20180713
